FAERS Safety Report 10209400 (Version 1)
Quarter: 2014Q2

REPORT INFORMATION
  Report Type: Spontaneous
  Country: KR (occurrence: KR)
  Receive Date: 20140531
  Receipt Date: 20140531
  Transmission Date: 20141212
  Serious: Yes (Hospitalization)
  Sender: FDA-Public Use
  Company Number: 2012SP004620

PATIENT
  Age: 54 Year
  Sex: Male
  Weight: 69 kg

DRUGS (19)
  1. DOXORUBICIN [Suspect]
     Route: 042
     Dates: start: 20121120, end: 20121120
  2. AXITINIB [Suspect]
     Route: 048
     Dates: start: 20120410, end: 20121120
  3. CALCIUM PANTOTHENATE [Concomitant]
     Dates: start: 20110812
  4. NICOTINAMIDE [Concomitant]
     Dates: start: 20110812
  5. PYRIDOXINE HYDROCHLORIDE [Concomitant]
     Dates: start: 20110812
  6. RIBOFLAVIN [Concomitant]
     Dates: start: 20110812
  7. THIAMINE HYDROCHLORIDE [Concomitant]
     Dates: start: 20110812
  8. DEXTROSE [Concomitant]
     Dates: start: 20121120, end: 20121120
  9. ENTECAVIR [Concomitant]
     Indication: HEPATITIS B
     Dates: start: 20110810
  10. FILGRASTIM [Concomitant]
     Indication: PROPHYLAXIS
     Dates: start: 20121127, end: 20121127
  11. GRANISETRON [Concomitant]
     Indication: VOMITING
     Dates: start: 20121120, end: 20121120
  12. METOCLOPRAMIDE [Concomitant]
     Indication: DYSPEPSIA
     Dates: start: 20120925
  13. DIASTASE [Concomitant]
     Indication: DYSPEPSIA
     Dates: start: 20120925
  14. PANCREATIN [Concomitant]
     Indication: DYSPEPSIA
     Dates: start: 20120925
  15. PEPSIN [Concomitant]
     Indication: DYSPEPSIA
     Dates: start: 20120925
  16. SIMETICONE [Concomitant]
     Indication: DYSPEPSIA
     Dates: start: 20120925
  17. RABEPRAZOLE [Concomitant]
     Indication: DYSPEPSIA
     Dates: start: 20120925
  18. SILYBUM MARIANUM [Concomitant]
     Dates: start: 20110812
  19. URSODEOXYCHOLIC ACID [Concomitant]
     Dates: start: 20110812

REACTIONS (3)
  - Febrile neutropenia [Recovered/Resolved]
  - Epistaxis [Recovered/Resolved]
  - Otitis media [Recovered/Resolved]
